FAERS Safety Report 25012329 (Version 1)
Quarter: 2025Q1

REPORT INFORMATION
  Report Type: Spontaneous
  Country: US (occurrence: US)
  Receive Date: 20250226
  Receipt Date: 20250226
  Transmission Date: 20250408
  Serious: No
  Sender: ALEXION PHARMACEUTICALS
  Company Number: US-AstraZeneca-CH-00815371A

PATIENT

DRUGS (3)
  1. BRILINTA [Suspect]
     Active Substance: TICAGRELOR
     Route: 065
  2. HAIR GROWTH [Concomitant]
     Active Substance: BLACK PEPPER\COLLAGEN, SOLUBLE, FISH SKIN\EQUISETUM ARVENSE TOP\POLYGONUM CUSPIDATUM ROOT\SAW PALMET
     Route: 065
  3. NUTRAFOL [Concomitant]
     Route: 065

REACTIONS (1)
  - Alopecia [Unknown]
